FAERS Safety Report 6043514-3 (Version None)
Quarter: 2009Q1

REPORT INFORMATION
  Report Type: 
  Country: None (occurrence: None)
  Receive Date: 20090120
  Receipt Date: 20090114
  Transmission Date: 20090719
  Serious: Yes (Life-Threatening)
  Sender: FDA-Public Use
  Company Number: US-KINGPHARMUSA00001-K200900026

PATIENT
  Sex: Female

DRUGS (9)
  1. ALTACE [Suspect]
     Indication: HYPERTENSION
     Dosage: 5 MG, QD
     Route: 048
     Dates: start: 20081007, end: 20081009
  2. ALTACE [Suspect]
     Dosage: 2.5 MG, QD
     Route: 048
     Dates: start: 20081010, end: 20081012
  3. FELODIPINE [Suspect]
     Dosage: 5 MG, QD
     Route: 048
     Dates: start: 20081007, end: 20081009
  4. FELODIPINE [Suspect]
     Dosage: 2.5 MG, QD, ORAL
     Route: 048
     Dates: start: 20081010, end: 20081012
  5. VALSARTAN/HYDROCHLOORTHIAZIDE [Concomitant]
     Indication: HYPERTENSION
     Dosage: UNK
     Route: 048
     Dates: start: 20081007
  6. CAPTOPRIL [Concomitant]
     Indication: HYPERTENSION
     Dosage: 75 MG, UNK
     Route: 048
     Dates: end: 20081001
  7. FLUVASTATIN SODIUM [Concomitant]
     Indication: DYSLIPIDAEMIA
     Dosage: 80 MG, UNK
     Route: 048
  8. RILMENIDINE [Concomitant]
     Indication: HYPERTENSION
     Dosage: 1 MG, UNK
     Route: 048
     Dates: start: 20081007
  9. NEBIVOLOL HCL [Concomitant]
     Indication: HYPERTENSION
     Dosage: 5 MG, UNK
     Route: 048

REACTIONS (6)
  - DYSPHAGIA [None]
  - DYSPNOEA [None]
  - GLOSSITIS [None]
  - OBSTRUCTIVE AIRWAYS DISORDER [None]
  - PHARYNGEAL INFLAMMATION [None]
  - SWOLLEN TONGUE [None]
